FAERS Safety Report 5016167-0 (Version None)
Quarter: 2006Q2

REPORT INFORMATION
  Report Type: 
  Country: None (occurrence: None)
  Receive Date: 20060601
  Receipt Date: 20060526
  Transmission Date: 20061013
  Serious: Yes (Hospitalization)
  Sender: FDA-Public Use
  Company Number: US-MERCK-0605USA05030

PATIENT
  Age: 32 Year
  Sex: Female

DRUGS (5)
  1. DOCETAXEL [Suspect]
     Route: 065
  2. NEULASTA [Suspect]
     Route: 058
  3. DECADRON [Suspect]
     Indication: PREMEDICATION
     Route: 048
  4. DOXORUBICIN [Suspect]
     Indication: CHEMOTHERAPY
     Route: 065
  5. CYCLOPHOSPHAMIDE [Suspect]
     Indication: CHEMOTHERAPY
     Route: 065

REACTIONS (2)
  - NEUTROPENIA [None]
  - PYREXIA [None]
